FAERS Safety Report 9176480 (Version 1)
Quarter: 2013Q1

REPORT INFORMATION
  Report Type: Spontaneous
  Country: US (occurrence: None)
  Receive Date: 20130319
  Receipt Date: 20130319
  Transmission Date: 20140127
  Serious: Yes (Other)
  Sender: FDA-Public Use
  Company Number: AUR-APL-2013-02275

PATIENT
  Age: 59 Year
  Sex: Female
  Weight: 81.18 kg

DRUGS (5)
  1. SERTRALINE (SERTALINE) [Suspect]
     Indication: MAJOR DEPRESSION
     Route: 048
     Dates: start: 200905
  2. MIRTAZAPINE (MIRTAZAPINE) [Suspect]
     Indication: MAJOR DEPRESSION
     Route: 048
     Dates: start: 200905
  3. LEVOTHYROXINE (LEVOTHYROXINE) [Concomitant]
  4. LIPITOR (ATORVASTATIN CALCIUM) [Concomitant]
  5. PRILOSEC [Concomitant]

REACTIONS (3)
  - Coeliac disease [None]
  - Blood cholesterol increased [None]
  - Thyroid disorder [None]
